FAERS Safety Report 6529188-3 (Version None)
Quarter: 2010Q1

REPORT INFORMATION
  Report Type: 
  Country: None (occurrence: None)
  Receive Date: 20100107
  Receipt Date: 20091223
  Transmission Date: 20100710
  Serious: Yes (Other)
  Sender: FDA-Public Use
  Company Number: ES-JNJFOC-20091207655

PATIENT
  Age: 39 Year
  Sex: Male

DRUGS (6)
  1. TOPAMAX [Suspect]
     Indication: OBSESSIVE-COMPULSIVE DISORDER
     Route: 048
  2. RISPERDAL CONSTA [Concomitant]
     Indication: SCHIZOPHRENIA
     Route: 030
  3. RISPERDAL CONSTA [Concomitant]
     Route: 030
  4. ANAFRANIL [Concomitant]
     Indication: SCHIZOPHRENIA
     Route: 048
  5. ZYPREXA [Concomitant]
     Indication: SCHIZOPHRENIA
     Route: 048
  6. ALOFEN [Concomitant]
     Indication: SCHIZOPHRENIA

REACTIONS (1)
  - THROMBOSIS [None]
